FAERS Safety Report 16382644 (Version 3)
Quarter: 2019Q3

REPORT INFORMATION
  Report Type: Report from Study
  Country: US (occurrence: US)
  Receive Date: 20190603
  Receipt Date: 20190929
  Transmission Date: 20191004
  Serious: Yes (Other)
  Sender: FDA-Public Use
  Company Number: PHEH2019US023181

PATIENT
  Sex: Male

DRUGS (1)
  1. ENTRESTO [Suspect]
     Active Substance: SACUBITRIL\VALSARTAN
     Indication: PRODUCT USED FOR UNKNOWN INDICATION
     Dosage: 1 DF (24 MG OF SACUBITRIL AND 26 MG OF VALSARTAN)
     Route: 048

REACTIONS (7)
  - Gait disturbance [Unknown]
  - Cough [Unknown]
  - Cardiac failure [Unknown]
  - Dyspnoea [Unknown]
  - Nasopharyngitis [Unknown]
  - Back pain [Unknown]
  - Myocardial infarction [Unknown]
